FAERS Safety Report 24635938 (Version 2)
Quarter: 2025Q1

REPORT INFORMATION
  Report Type: Spontaneous
  Country: US (occurrence: US)
  Receive Date: 20241119
  Receipt Date: 20250221
  Transmission Date: 20250409
  Serious: No
  Sender: CATALYST PHARMA
  Company Number: US-CATALYST PHARMACEUTICALS-US-CATA-24-01145

PATIENT
  Sex: Male
  Weight: 25.85 kg

DRUGS (6)
  1. AGAMREE [Suspect]
     Active Substance: VAMOROLONE
     Indication: Duchenne muscular dystrophy
     Dosage: 3.8 ML EVERYDAY
     Route: 048
     Dates: start: 20240510, end: 202410
  2. EMFLAZA [Suspect]
     Active Substance: DEFLAZACORT
     Indication: Duchenne muscular dystrophy
     Route: 065
     Dates: start: 202410
  3. CALCIUM [Concomitant]
     Active Substance: CALCIUM
     Indication: Product used for unknown indication
     Dosage: 500 MG DAILY
     Route: 048
  4. COENZYME Q10 [Concomitant]
     Active Substance: DIETARY SUPPLEMENT\UBIDECARENONE
     Indication: Product used for unknown indication
     Dosage: 100 MG DAILY
     Route: 048
  5. FISH OIL [Concomitant]
     Active Substance: FISH OIL
     Indication: Product used for unknown indication
     Dosage: 1000 MG DAILY
     Route: 065
  6. VITAMIN D3 [Concomitant]
     Active Substance: CHOLECALCIFEROL
     Indication: Product used for unknown indication
     Dosage: 5000 UNITS ONCE A DAY
     Route: 065

REACTIONS (6)
  - Muscle tightness [Unknown]
  - Asthenia [Not Recovered/Not Resolved]
  - Muscle injury [Unknown]
  - Posture abnormal [Unknown]
  - Fatigue [Not Recovered/Not Resolved]
  - Swelling face [Not Recovered/Not Resolved]

NARRATIVE: CASE EVENT DATE: 20240101
